FAERS Safety Report 20084345 (Version 1)
Quarter: 2021Q4

REPORT INFORMATION
  Report Type: Spontaneous
  Country: US (occurrence: US)
  Receive Date: 20211118
  Receipt Date: 20211118
  Transmission Date: 20220303
  Serious: Yes (Death, Life-Threatening, Hospitalization, Other)
  Sender: FDA-Public Use
  Company Number: US-MLMSERVICE-20211102-3197192-1

PATIENT
  Age: 48 Year
  Sex: Male

DRUGS (3)
  1. CISPLATIN [Suspect]
     Active Substance: CISPLATIN
     Indication: Squamous cell carcinoma of head and neck
  2. DEXAMETHASONE [Suspect]
     Active Substance: DEXAMETHASONE
     Indication: Face oedema
     Route: 048
  3. SULFAMETHOXAZOLE\TRIMETHOPRIM [Concomitant]
     Active Substance: SULFAMETHOXAZOLE\TRIMETHOPRIM
     Indication: Prophylaxis

REACTIONS (11)
  - Ruptured cerebral aneurysm [Fatal]
  - Infective aneurysm [Fatal]
  - Disseminated aspergillosis [Fatal]
  - Intracranial aneurysm [Fatal]
  - Aspergillus infection [Fatal]
  - Cerebrovascular accident [Fatal]
  - Hydrocephalus [Fatal]
  - Brain abscess [Fatal]
  - Subarachnoid haemorrhage [Fatal]
  - Haemorrhage [Fatal]
  - Off label use [Unknown]
